FAERS Safety Report 7811995-8 (Version None)
Quarter: 2011Q4

REPORT INFORMATION
  Report Type: 
  Country: None (occurrence: None)
  Receive Date: 20111013
  Receipt Date: 20110929
  Transmission Date: 20120403
  Serious: Yes (Hospitalization)
  Sender: FDA-Public Use
  Company Number: DE-ROCHE-751483

PATIENT
  Sex: Male
  Weight: 80 kg

DRUGS (2)
  1. HERCEPTIN [Suspect]
     Dates: start: 20110422, end: 20110422
  2. HERCEPTIN [Suspect]
     Indication: GASTRIC CANCER
     Dosage: CURRENT IS FIFTH CYCLE
     Route: 042

REACTIONS (3)
  - GASTRIC HAEMORRHAGE [None]
  - PAPILLOEDEMA [None]
  - HAEMOGLOBIN DECREASED [None]
